FAERS Safety Report 23010102 (Version 2)
Quarter: 2023Q4

REPORT INFORMATION
  Report Type: Spontaneous
  Country: NO (occurrence: NO)
  Receive Date: 20230929
  Receipt Date: 20231004
  Transmission Date: 20240109
  Serious: Yes (Congenital Anomaly)
  Sender: FDA-Public Use
  Company Number: None

PATIENT

DRUGS (1)
  1. DOPTELET [Suspect]
     Active Substance: AVATROMBOPAG MALEATE
     Indication: Immune thrombocytopenia
     Dosage: FLUCTUATING DOSAGE
     Dates: start: 20221022, end: 20221222

REACTIONS (2)
  - Abortion induced [Unknown]
  - Trisomy 21 [Unknown]
